FAERS Safety Report 6977522-2 (Version None)
Quarter: 2010Q3

REPORT INFORMATION
  Report Type: 
  Country: None (occurrence: None)
  Receive Date: 20100910
  Receipt Date: 20100901
  Transmission Date: 20110219
  Serious: Yes (Other)
  Sender: FDA-Public Use
  Company Number: US-AMGEN-QUU435789

PATIENT
  Sex: Male

DRUGS (2)
  1. NPLATE [Suspect]
     Indication: IDIOPATHIC THROMBOCYTOPENIC PURPURA
     Dates: start: 20090622, end: 20090717
  2. DEXAMETHASONE [Concomitant]
     Dates: start: 20090611, end: 20090616

REACTIONS (1)
  - TRANSURETHRAL PROSTATECTOMY [None]
